FAERS Safety Report 19078638 (Version 4)
Quarter: 2021Q2

REPORT INFORMATION
  Report Type: Report from Study
  Country: FR (occurrence: FR)
  Receive Date: 20210331
  Receipt Date: 20210504
  Transmission Date: 20210717
  Serious: Yes (Life-Threatening, Hospitalization)
  Sender: FDA-Public Use
  Company Number: FR-IMMUNOMEDICS, INC.-2021IMMU000162

PATIENT
  Age: 71 Year
  Sex: Female
  Weight: 60 kg

DRUGS (18)
  1. IMODIUM [Concomitant]
     Active Substance: LOPERAMIDE HYDROCHLORIDE
     Indication: DIARRHOEA
     Dosage: UNK UNK, PRN
     Route: 065
     Dates: start: 20200917
  2. OXYCONTIN [Concomitant]
     Active Substance: OXYCODONE HYDROCHLORIDE
     Indication: PAIN
     Dosage: 10 MG, BID
     Route: 065
     Dates: start: 20201211, end: 20210308
  3. UVEDOSE [Concomitant]
     Active Substance: CHOLECALCIFEROL
     Indication: PROPHYLAXIS
  4. PROTIFAR [Concomitant]
     Active Substance: DIETARY SUPPLEMENT
     Indication: HYPOALBUMINAEMIA
     Dosage: 2 DF (TABLETS), BID
     Route: 065
     Dates: start: 20200125
  5. REFRESH CELLUVISC [Concomitant]
     Active Substance: CARBOXYMETHYLCELLULOSE SODIUM
     Indication: DRY EYE
     Dosage: 1 DF (UNIT DOSE), BID
     Route: 065
     Dates: start: 20200817
  6. APREPITANT. [Concomitant]
     Active Substance: APREPITANT
     Dosage: 80 MG, EVERY D2 D3
     Route: 065
     Dates: start: 20200916
  7. SACITUZUMAB GOVITECAN. [Suspect]
     Active Substance: SACITUZUMAB GOVITECAN
     Dosage: 10 MG/KG (600 MG) DAYS 1 AND 8 OF 21?DAYS CYCLE
     Route: 042
     Dates: start: 20210308, end: 20210308
  8. DARBEPOETINUM ALFA [Concomitant]
     Active Substance: DARBEPOETIN ALFA
     Indication: ANAEMIA
     Dosage: 500 UG
     Route: 065
     Dates: start: 20201022, end: 20210222
  9. ABSTRAL [Concomitant]
     Active Substance: FENTANYL CITRATE
     Indication: PAIN
     Dosage: 200 UG, PRN
     Route: 065
     Dates: start: 20201211
  10. METOPIMAZINE DCI [Concomitant]
     Indication: PROPHYLAXIS OF NAUSEA AND VOMITING
     Dosage: 7.5 MG, X3 D2 D3 D4 OF EACH COURSE
     Route: 065
     Dates: start: 20200916
  11. APREPITANT. [Concomitant]
     Active Substance: APREPITANT
     Indication: PROPHYLAXIS OF NAUSEA AND VOMITING
     Dosage: 125 MG, EVERY D1
     Route: 065
     Dates: start: 20200915, end: 20210308
  12. OMEPRAZOLE ABBOTT [Concomitant]
     Active Substance: OMEPRAZOLE
     Indication: PROPHYLAXIS AGAINST GASTROINTESTINAL ULCER
     Dosage: 20 MG, QD
     Route: 065
     Dates: start: 200505
  13. OXYNORM [Concomitant]
     Active Substance: OXYCODONE HYDROCHLORIDE
     Indication: BONE PAIN
     Dosage: 10 MG, PRN
     Route: 065
     Dates: start: 202002
  14. LOVENOX [Concomitant]
     Active Substance: ENOXAPARIN SODIUM
     Indication: THROMBOSIS PROPHYLAXIS
     Dosage: 0.4 ML, QD
     Route: 065
     Dates: start: 20200923
  15. SACITUZUMAB GOVITECAN. [Suspect]
     Active Substance: SACITUZUMAB GOVITECAN
     Indication: BREAST CANCER METASTATIC
     Dosage: 10 MG/KG (600 MG) DAYS 1 AND 8 OF 21?DAYS CYCLE
     Route: 042
     Dates: start: 20200915, end: 20200915
  16. LAMALINE [Concomitant]
     Indication: BONE PAIN
     Dosage: UNK, PRN
     Route: 065
     Dates: start: 202002
  17. DOLIPRANE [Concomitant]
     Active Substance: ACETAMINOPHEN
     Indication: BONE PAIN
     Dosage: 1 G, PRN
     Route: 065
     Dates: start: 202002
  18. UVEDOSE [Concomitant]
     Active Substance: CHOLECALCIFEROL
     Indication: VITAMIN D DEFICIENCY
     Dosage: 100000 IU, TWICE A MONTH
     Route: 065
     Dates: start: 20201125

REACTIONS (2)
  - Haematoma [Not Recovered/Not Resolved]
  - Thrombocytopenia [Not Recovered/Not Resolved]

NARRATIVE: CASE EVENT DATE: 20210322
